FAERS Safety Report 16781542 (Version 1)
Quarter: 2019Q3

REPORT INFORMATION
  Report Type: Spontaneous
  Country: US (occurrence: US)
  Receive Date: 20190906
  Receipt Date: 20190906
  Transmission Date: 20191005
  Serious: No
  Sender: FDA-Public Use
  Company Number: US-AKRON, INC.-2074107

PATIENT
  Sex: Female

DRUGS (1)
  1. LIDOCAINE HCL ORAL TOPICAL SOLUTION, USP (VISCOUS) 2% [Suspect]
     Active Substance: LIDOCAINE HYDROCHLORIDE
     Route: 048

REACTIONS (1)
  - Drug ineffective [Recovered/Resolved]
